FAERS Safety Report 10257455 (Version 1)
Quarter: 2014Q2

REPORT INFORMATION
  Report Type: Spontaneous
  Country: US (occurrence: None)
  Receive Date: 20140623
  Receipt Date: 20140623
  Transmission Date: 20141212
  Serious: Yes (Death)
  Sender: FDA-Public Use
  Company Number: None

PATIENT
  Age: 61 Year
  Sex: Female
  Weight: 66 kg

DRUGS (5)
  1. ALTEPLASE [Suspect]
     Indication: ISCHAEMIC STROKE
     Dosage: 1 DOSE
  2. PREMARIN [Concomitant]
  3. PEPCID [Concomitant]
  4. FLM [Concomitant]
  5. ZOLOFT [Concomitant]

REACTIONS (2)
  - General physical health deterioration [None]
  - Aneurysm ruptured [None]
